FAERS Safety Report 13791574 (Version 1)
Quarter: 2017Q3

REPORT INFORMATION
  Report Type: Report from Study
  Country: None (occurrence: DE)
  Receive Date: 20170725
  Receipt Date: 20170725
  Transmission Date: 20171127
  Serious: Yes (Hospitalization, Other)
  Sender: FDA-Public Use
  Company Number: DE-ABBVIE-17K-062-2024483-00

PATIENT
  Age: 55 Year
  Sex: Male
  Weight: 95 kg

DRUGS (11)
  1. HUMIRA [Suspect]
     Active Substance: ADALIMUMAB
     Route: 058
     Dates: start: 20170514
  2. HUMIRA [Suspect]
     Active Substance: ADALIMUMAB
     Indication: PSORIASIS
     Route: 058
     Dates: start: 201405, end: 20170405
  3. LERCANIDIPINE [Concomitant]
     Active Substance: LERCANIDIPINE
     Indication: PRODUCT USED FOR UNKNOWN INDICATION
     Dates: end: 2017
  4. PROCORALAN [Concomitant]
     Active Substance: IVABRADINE
     Indication: PRODUCT USED FOR UNKNOWN INDICATION
  5. FORXIGA [Concomitant]
     Active Substance: DAPAGLIFLOZIN
     Indication: PRODUCT USED FOR UNKNOWN INDICATION
  6. ASPIRIN. [Concomitant]
     Active Substance: ASPIRIN
     Indication: CORONARY ARTERY DISEASE
  7. PANTOZOL (ERYTHROMYCIN\SULFISOXAZOLE) [Concomitant]
     Active Substance: ERYTHROMYCIN\SULFISOXAZOLE
     Indication: PRODUCT USED FOR UNKNOWN INDICATION
     Dates: end: 2017
  8. HCT [Concomitant]
     Active Substance: HYDROCHLOROTHIAZIDE
     Indication: PRODUCT USED FOR UNKNOWN INDICATION
  9. TELMISARTAN. [Concomitant]
     Active Substance: TELMISARTAN
     Indication: PRODUCT USED FOR UNKNOWN INDICATION
     Dates: end: 2017
  10. SIMVASTATIN. [Concomitant]
     Active Substance: SIMVASTATIN
     Indication: PRODUCT USED FOR UNKNOWN INDICATION
  11. METFORMIN [Concomitant]
     Active Substance: METFORMIN HYDROCHLORIDE
     Indication: PRODUCT USED FOR UNKNOWN INDICATION

REACTIONS (26)
  - Restrictive pulmonary disease [Recovered/Resolved]
  - Postoperative respiratory failure [Unknown]
  - Diastolic dysfunction [Unknown]
  - Ventricular tachycardia [Unknown]
  - Glycosuria [Unknown]
  - Anxiety [Unknown]
  - Angina pectoris [Unknown]
  - Arteriosclerosis [Unknown]
  - Impaired healing [Unknown]
  - Angina pectoris [Recovered/Resolved]
  - Night sweats [Unknown]
  - Albuminuria [Unknown]
  - Coronary artery stenosis [Unknown]
  - Coronary artery bypass [Unknown]
  - Pleural effusion [Recovered/Resolved]
  - Cardiac failure chronic [Unknown]
  - Chest pain [Unknown]
  - Atrioventricular block first degree [Unknown]
  - Ventricular extrasystoles [Unknown]
  - Left ventricular dilatation [Unknown]
  - Tachycardia [Unknown]
  - Cholecystectomy [Unknown]
  - Supraventricular extrasystoles [Unknown]
  - Arteriosclerosis coronary artery [Unknown]
  - Coronary artery stenosis [Unknown]
  - Angina pectoris [Unknown]

NARRATIVE: CASE EVENT DATE: 201509
